FAERS Safety Report 5800528-3 (Version None)
Quarter: 2008Q3

REPORT INFORMATION
  Report Type: 
  Country: None (occurrence: None)
  Receive Date: 20080702
  Receipt Date: 20080702
  Transmission Date: 20090109
  Serious: Yes (Other)
  Sender: FDA-Public Use
  Company Number: None

PATIENT
  Sex: Male

DRUGS (4)
  1. REVLIMID [Suspect]
     Indication: MYELODYSPLASTIC SYNDROME
     Dosage: 10MG DAILY OPHTHALMIC
     Route: 047
  2. LEVOBUNOLOL HCL [Concomitant]
  3. IBUPROFEN [Concomitant]
  4. ACYCLOVIR [Concomitant]

REACTIONS (1)
  - NEUTROPENIA [None]
